FAERS Safety Report 20975890 (Version 2)
Quarter: 2022Q3

REPORT INFORMATION
  Report Type: Spontaneous
  Country: US (occurrence: US)
  Receive Date: 20220617
  Receipt Date: 20220708
  Transmission Date: 20221027
  Serious: Yes (Other)
  Sender: FDA-Public Use
  Company Number: US-PFIZER INC-202200842650

PATIENT
  Age: 84 Year
  Sex: Female
  Weight: 56.25 kg

DRUGS (1)
  1. TOVIAZ [Suspect]
     Active Substance: FESOTERODINE FUMARATE
     Indication: Incontinence
     Dosage: 8 MG, 1X/DAY
     Dates: start: 202206

REACTIONS (3)
  - Cerebrovascular accident [Unknown]
  - Dry mouth [Unknown]
  - Body height decreased [Unknown]

NARRATIVE: CASE EVENT DATE: 20220601
